FAERS Safety Report 14288824 (Version 1)
Quarter: 2017Q4

REPORT INFORMATION
  Report Type: Report from Study
  Country: US (occurrence: US)
  Receive Date: 20171214
  Receipt Date: 20171214
  Transmission Date: 20180321
  Serious: Yes (Other)
  Sender: FDA-Public Use
  Company Number: US-BAYER-2017-236351

PATIENT
  Age: 73 Year
  Sex: Male

DRUGS (1)
  1. STIVARGA [Suspect]
     Active Substance: REGORAFENIB
     Indication: RECTAL CANCER
     Dosage: DAILY DOSE 120 MG FOR 21 DAYS, OFF 7 DAYS
     Route: 048
     Dates: start: 20170922, end: 2017

REACTIONS (2)
  - Off label use [None]
  - Medical procedure [None]

NARRATIVE: CASE EVENT DATE: 2017
